FAERS Safety Report 6834702-4 (Version None)
Quarter: 2010Q3

REPORT INFORMATION
  Report Type: 
  Country: None (occurrence: None)
  Receive Date: 20100712
  Receipt Date: 20070606
  Transmission Date: 20110219
  Serious: No
  Sender: FDA-Public Use
  Company Number: US-PFIZER INC-2007029869

PATIENT
  Age: 42 Year
  Sex: Female
  Weight: 117.9 kg

DRUGS (1)
  1. CHANTIX [Suspect]
     Dates: start: 20070101, end: 20070301

REACTIONS (1)
  - ANGER [None]
